FAERS Safety Report 23109782 (Version 1)
Quarter: 2023Q4

REPORT INFORMATION
  Report Type: Spontaneous
  Country: US (occurrence: None)
  Receive Date: 20231024
  Receipt Date: 20231024
  Transmission Date: 20240109
  Serious: Yes (Death, Hospitalization)
  Sender: FDA-Public Use
  Company Number: None

PATIENT
  Age: 93 Year
  Sex: Male
  Weight: 75.3 kg

DRUGS (1)
  1. HYDROMORPHONE [Suspect]
     Active Substance: HYDROMORPHONE
     Dosage: FREQUENCY : ONCE;?
     Route: 042
     Dates: start: 20220615, end: 20220615

REACTIONS (4)
  - Hypotension [None]
  - Rash [None]
  - Dysphagia [None]
  - Therapy cessation [None]

NARRATIVE: CASE EVENT DATE: 20220615
